FAERS Safety Report 20136120 (Version 4)
Quarter: 2022Q1

REPORT INFORMATION
  Report Type: Report from Study
  Country: CZ (occurrence: CZ)
  Receive Date: 20211201
  Receipt Date: 20220304
  Transmission Date: 20220423
  Serious: Yes (Hospitalization)
  Sender: FDA-Public Use
  Company Number: CZ-JNJFOC-20211149370

PATIENT
  Age: 58 Year
  Sex: Male
  Weight: 137.1 kg

DRUGS (12)
  1. ESKETAMINE [Suspect]
     Active Substance: ESKETAMINE
     Indication: Major depression
     Dates: start: 20180205, end: 20211115
  2. ESKETAMINE [Suspect]
     Active Substance: ESKETAMINE
     Indication: Depression
  3. LYRICA [Concomitant]
     Active Substance: PREGABALIN
     Dosage: 1-0-1
  4. OLWEXYA [Concomitant]
     Dosage: 1-1-0
  5. SULPIRIDE [Concomitant]
     Active Substance: SULPIRIDE
     Dosage: 1-1-2
  6. NEBIVOLOL [Concomitant]
     Active Substance: NEBIVOLOL
     Dosage: 5 MG TABLET (HALF TABLET MORNING)
  7. TRAZODONE HYDROCHLORIDE [Concomitant]
     Active Substance: TRAZODONE HYDROCHLORIDE
     Dosage: 0-0-1
  8. PANTOPRAZOLE SODIUM [Concomitant]
     Active Substance: PANTOPRAZOLE SODIUM
     Dosage: 1-0-0 WHILE ON TROMBEX
  9. VENLAFAXINE [Concomitant]
     Active Substance: VENLAFAXINE HYDROCHLORIDE
     Dosage: 1-1-0
  10. SULPIRIDE [Concomitant]
     Active Substance: SULPIRIDE
     Dosage: 1-1-2
  11. ROSUVASTATIN CALCIUM [Concomitant]
     Active Substance: ROSUVASTATIN CALCIUM
     Dosage: 0-0-1
  12. RAMIPRIL [Concomitant]
     Active Substance: RAMIPRIL
     Dosage: 0-0-1

REACTIONS (1)
  - Myocardial infarction [Recovered/Resolved]

NARRATIVE: CASE EVENT DATE: 20211121
